FAERS Safety Report 7867833-0 (Version None)
Quarter: 2011Q4

REPORT INFORMATION
  Report Type: 
  Country: None (occurrence: None)
  Receive Date: 20111025
  Receipt Date: 20111017
  Transmission Date: 20120403
  Serious: Yes (Other)
  Sender: FDA-Public Use
  Company Number: 1081937

PATIENT
  Age: 16 Year
  Sex: Female

DRUGS (4)
  1. ACINOMYCIN D [Suspect]
     Indication: EWING'S SARCOMA METASTATIC
  2. VINCRISTINE SULFATE [Suspect]
     Indication: EWING'S SARCOMA METASTATIC
  3. IFOSFAMIDE [Suspect]
     Indication: EWING'S SARCOMA METASTATIC
  4. THERAPEUTIC RADIOPHARMACEUTICALS [Suspect]
     Indication: METASTASES TO LUNG

REACTIONS (3)
  - FOOT FRACTURE [None]
  - TUBULOINTERSTITIAL NEPHRITIS [None]
  - BONE METABOLISM DISORDER [None]
